FAERS Safety Report 21795962 (Version 1)
Quarter: 2022Q4

REPORT INFORMATION
  Report Type: Report from Study
  Country: US (occurrence: US)
  Receive Date: 20221229
  Receipt Date: 20221229
  Transmission Date: 20230113
  Serious: No
  Sender: FDA-Public Use
  Company Number: US-ABBVIE-22K-163-4526825-00

PATIENT
  Sex: Male

DRUGS (2)
  1. SKYRIZI [Suspect]
     Active Substance: RISANKIZUMAB-RZAA
     Indication: Psoriasis
     Route: 058
  2. COVID-19 VACCINE [Concomitant]
     Indication: COVID-19 immunisation
     Route: 030

REACTIONS (10)
  - COVID-19 [Unknown]
  - Platelet count decreased [Unknown]
  - Psoriasis [Unknown]
  - Increased tendency to bruise [Unknown]
  - Memory impairment [Unknown]
  - Decreased appetite [Unknown]
  - Cough [Unknown]
  - Weight decreased [Unknown]
  - Contusion [Unknown]
  - Hypersensitivity [Unknown]
